FAERS Safety Report 10551720 (Version 1)
Quarter: 2014Q4

REPORT INFORMATION
  Report Type: Spontaneous
  Country: US (occurrence: None)
  Receive Date: 20141028
  Receipt Date: 20141028
  Transmission Date: 20150529
  Serious: Yes (Hospitalization)
  Sender: FDA-Public Use
  Company Number: None

PATIENT
  Age: 69 Year
  Sex: Female
  Weight: 53 kg

DRUGS (1)
  1. TAXOL [Suspect]
     Active Substance: PACLITAXEL
     Dates: end: 20131217

REACTIONS (4)
  - Dry eye [None]
  - Blepharitis [None]
  - Cellulitis orbital [None]
  - Influenza [None]

NARRATIVE: CASE EVENT DATE: 20140211
